FAERS Safety Report 8025298-2 (Version None)
Quarter: 2012Q1

REPORT INFORMATION
  Report Type: 
  Country: None (occurrence: None)
  Receive Date: 20120105
  Receipt Date: 20111227
  Transmission Date: 20120608
  Serious: Yes (Hospitalization)
  Sender: FDA-Public Use
  Company Number: US-BAYER-2011-087462

PATIENT
  Age: 24 Year
  Sex: Female

DRUGS (5)
  1. YASMIN [Suspect]
     Dosage: UNK
     Route: 048
     Dates: start: 20030101, end: 20030101
  2. PROZAC [Concomitant]
     Indication: DEPRESSION
     Dosage: 20 MG, UNK
     Route: 048
     Dates: start: 20030418
  3. NAPROXEN (ALEVE) [Concomitant]
  4. IBUPROFEN (ADVIL) [Concomitant]
  5. CLEOCIN PHOSPHATE [Concomitant]
     Indication: VAGINITIS BACTERIAL
     Dosage: UNK
     Dates: start: 20030416

REACTIONS (3)
  - DEPRESSION [None]
  - PAIN [None]
  - PULMONARY EMBOLISM [None]
